FAERS Safety Report 4396270-9 (Version None)
Quarter: 2004Q3

REPORT INFORMATION
  Report Type: 
  Country: None (occurrence: None)
  Receive Date: 20040709
  Receipt Date: 20040624
  Transmission Date: 20050211
  Serious: Yes (Hospitalization, Other)
  Sender: FDA-Public Use
  Company Number: 2004-DE-03511GD

PATIENT
  Age: 43 Year
  Sex: Male

DRUGS (6)
  1. ATROVENT [Suspect]
     Indication: BRONCHOSPASM
     Dosage: 0.04 MG
     Route: 055
  2. MESNA (MESNA) (NR) [Concomitant]
  3. ENOXAPARIN (HEPARIN-FRACTION, SODIUM SALT)(NR) [Concomitant]
  4. RANITIDINE (RANITIDINE) (NR) [Concomitant]
  5. BUPIVACAINE [Concomitant]
  6. METHADONE (METHADONE) (NR) [Concomitant]

REACTIONS (3)
  - ABDOMINAL DISTENSION [None]
  - FLATULENCE [None]
  - ILEUS PARALYTIC [None]
